FAERS Safety Report 7767276-4 (Version None)
Quarter: 2011Q3

REPORT INFORMATION
  Report Type: 
  Country: None (occurrence: None)
  Receive Date: 20110922
  Receipt Date: 20110722
  Transmission Date: 20111222
  Serious: No
  Sender: FDA-Public Use
  Company Number: US-ASTRAZENECA-2011SE44144

PATIENT
  Age: 49 Year
  Sex: Female
  Weight: 64.9 kg

DRUGS (9)
  1. NEURONTIN [Concomitant]
  2. AMLODIPINE [Concomitant]
  3. ATIVAN [Concomitant]
  4. XANAX [Concomitant]
  5. SEROQUEL XR [Suspect]
     Indication: BIPOLAR DISORDER
     Route: 048
     Dates: start: 20110718, end: 20110720
  6. LAMICTAL [Concomitant]
  7. SEROQUEL XR [Suspect]
     Route: 048
     Dates: start: 20110721
  8. ATENOLOL [Concomitant]
  9. ENALAPRIL MALEATE [Concomitant]

REACTIONS (5)
  - DRY MOUTH [None]
  - SOMNOLENCE [None]
  - VISION BLURRED [None]
  - BLOOD PRESSURE INCREASED [None]
  - STRESS [None]
